FAERS Safety Report 11646200 (Version 1)
Quarter: 2015Q4

REPORT INFORMATION
  Report Type: Spontaneous
  Country: US (occurrence: US)
  Receive Date: 20151020
  Receipt Date: 20151020
  Transmission Date: 20160304
  Serious: No
  Sender: FDA-Public Use
  Company Number: US-ROCHE-1616018

PATIENT
  Sex: Male

DRUGS (2)
  1. ESBRIET [Suspect]
     Active Substance: PIRFENIDONE
     Dosage: 3 AT BREAKFAST, 3 AT LUNCH, 3 AT SUPPER
     Route: 065
  2. ESBRIET [Suspect]
     Active Substance: PIRFENIDONE
     Indication: PRODUCT USED FOR UNKNOWN INDICATION
     Dosage: 2 AT BREAKFAST, 3 AT LUNCH, AND 3 AT SUPPER
     Route: 065

REACTIONS (2)
  - Nausea [Unknown]
  - Rash pruritic [Not Recovered/Not Resolved]
